FAERS Safety Report 4828783-7 (Version None)
Quarter: 2005Q4

REPORT INFORMATION
  Report Type: 
  Country: None (occurrence: None)
  Receive Date: 20051014
  Receipt Date: 20050825
  Transmission Date: 20060501
  Serious: No
  Sender: FDA-Public Use
  Company Number: 2005SP002516

PATIENT
  Age: 23 Year
  Sex: Male
  Weight: 161.4805 kg

DRUGS (1)
  1. LUNESTA [Suspect]
     Dosage: 2 MG;HS;ORAL
     Route: 048
     Dates: start: 20050601, end: 20050101

REACTIONS (1)
  - INSOMNIA [None]
